FAERS Safety Report 24335406 (Version 1)
Quarter: 2024Q3

REPORT INFORMATION
  Report Type: Report from Study
  Country: US (occurrence: US)
  Receive Date: 20240918
  Receipt Date: 20240918
  Transmission Date: 20241016
  Serious: Yes (Other)
  Sender: ABBVIE
  Company Number: US-ABBVIE-5774149

PATIENT
  Sex: Female

DRUGS (1)
  1. VENCLEXTA [Suspect]
     Active Substance: VENETOCLAX
     Indication: Acute myeloid leukaemia
     Route: 048
     Dates: start: 202402

REACTIONS (4)
  - Aspiration bone marrow [Unknown]
  - Diarrhoea [Unknown]
  - Dehydration [Unknown]
  - Fall [Unknown]

NARRATIVE: CASE EVENT DATE: 20240101
